FAERS Safety Report 25137782 (Version 3)
Quarter: 2025Q2

REPORT INFORMATION
  Report Type: Spontaneous
  Country: PL (occurrence: PL)
  Receive Date: 20250329
  Receipt Date: 20250418
  Transmission Date: 20250716
  Serious: Yes (Hospitalization, Other)
  Sender: AUROBINDO
  Company Number: PL-Adamed-2025-AER-00056

PATIENT
  Age: 59 Year
  Sex: Male

DRUGS (2)
  1. RIVAROXABAN [Suspect]
     Active Substance: RIVAROXABAN
     Indication: Deep vein thrombosis
     Dosage: 15 MILLIGRAM, TWO TIMES A DAY
     Route: 048
  2. AZATHIOPRINE [Concomitant]
     Active Substance: AZATHIOPRINE
     Indication: Product used for unknown indication
     Route: 048

REACTIONS (9)
  - Subcutaneous haematoma [Unknown]
  - Haematoma infection [Recovering/Resolving]
  - Deep vein thrombosis [Recovering/Resolving]
  - Vascular pseudoaneurysm [Recovered/Resolved]
  - Oedema peripheral [Recovered/Resolved]
  - Haematoma [Recovering/Resolving]
  - Post procedural haematoma [Recovering/Resolving]
  - Vascular compression [Recovering/Resolving]
  - Drug ineffective [Unknown]
